FAERS Safety Report 6635172-1 (Version None)
Quarter: 2010Q1

REPORT INFORMATION
  Report Type: 
  Country: None (occurrence: None)
  Receive Date: 20100315
  Receipt Date: 20100311
  Transmission Date: 20100710
  Serious: Yes (Other)
  Sender: FDA-Public Use
  Company Number: TN-ROXANE LABORATORIES, INC.-2010-RO-00255RO

PATIENT
  Age: 56 Year
  Sex: Male

DRUGS (6)
  1. FUROSEMIDE [Suspect]
     Indication: HYPERTENSION
     Dosage: 40 MG
  2. METHOTREXATE [Suspect]
     Indication: MIXED CONNECTIVE TISSUE DISEASE
  3. IREBSARTAN-HYDROCHLOROTHIAZIDE [Suspect]
     Indication: MIXED CONNECTIVE TISSUE DISEASE
  4. IRBESARTAN [Suspect]
     Indication: MIXED CONNECTIVE TISSUE DISEASE
  5. DESONIDE [Concomitant]
     Indication: LICHENOID KERATOSIS
  6. CETIRIZINE [Concomitant]
     Indication: LICHENOID KERATOSIS

REACTIONS (2)
  - DRUG INTERACTION [None]
  - LICHENOID KERATOSIS [None]
